FAERS Safety Report 12139948 (Version 1)
Quarter: 2016Q1

REPORT INFORMATION
  Report Type: Spontaneous
  Country: US (occurrence: US)
  Receive Date: 20160303
  Receipt Date: 20160303
  Transmission Date: 20160526
  Serious: Yes (Death, Hospitalization)
  Sender: FDA-Public Use
  Company Number: US-DRREDDYS-USA/USA/16/0077480

PATIENT
  Age: 51 Year
  Sex: Male

DRUGS (5)
  1. GANCICLOVIR. [Concomitant]
     Active Substance: GANCICLOVIR
     Indication: PRODUCT USED FOR UNKNOWN INDICATION
     Route: 042
  2. SIROLIMUS. [Suspect]
     Active Substance: SIROLIMUS
     Indication: PROPHYLAXIS AGAINST GRAFT VERSUS HOST DISEASE
     Route: 065
  3. SIROLIMUS. [Interacting]
     Active Substance: SIROLIMUS
     Route: 065
  4. POSACONAZOLE [Interacting]
     Active Substance: POSACONAZOLE
     Indication: ANTIFUNGAL PROPHYLAXIS
     Route: 065
  5. CIPROFLOXACIN. [Concomitant]
     Active Substance: CIPROFLOXACIN
     Indication: PRODUCT USED FOR UNKNOWN INDICATION
     Route: 065

REACTIONS (20)
  - Ascites [Unknown]
  - Hepatomegaly [Unknown]
  - Oropharyngeal pain [Unknown]
  - Hepatic encephalopathy [Unknown]
  - Dyspnoea [Unknown]
  - Immunosuppressant drug level increased [Unknown]
  - Hypotension [Unknown]
  - Cytomegalovirus infection [Unknown]
  - Decreased appetite [Unknown]
  - Atrial fibrillation [Unknown]
  - Drug interaction [Unknown]
  - Hepatitis B [Unknown]
  - Drug-induced liver injury [Unknown]
  - Toxicity to various agents [Unknown]
  - Abdominal pain [Unknown]
  - Haemoglobin decreased [Unknown]
  - Platelet count decreased [Unknown]
  - Venoocclusive disease [Unknown]
  - Multiple organ dysfunction syndrome [Fatal]
  - Hepatorenal syndrome [Unknown]
